FAERS Safety Report 9611995 (Version 1)
Quarter: 2013Q4

REPORT INFORMATION
  Report Type: Spontaneous
  Country: CH (occurrence: CH)
  Receive Date: 20131010
  Receipt Date: 20131010
  Transmission Date: 20140711
  Serious: Yes (Hospitalization, Other)
  Sender: FDA-Public Use
  Company Number: CH-BAYER-2013-118923

PATIENT
  Age: 40 Year
  Sex: Female

DRUGS (2)
  1. MIRENA [Suspect]
     Dosage: 20 MCG/24HR, CONT
     Route: 015
     Dates: start: 20130828, end: 20130903
  2. AMOXICILLIN [Concomitant]
     Indication: PHARYNGEAL INFLAMMATION
     Dosage: UNK
     Dates: start: 20130821, end: 20130901

REACTIONS (3)
  - Hypertensive crisis [Recovering/Resolving]
  - Conjunctival haemorrhage [Recovering/Resolving]
  - Headache [Recovering/Resolving]
